FAERS Safety Report 16427798 (Version 1)
Quarter: 2019Q2

REPORT INFORMATION
  Report Type: Spontaneous
  Country: IT (occurrence: IT)
  Receive Date: 20190613
  Receipt Date: 20190613
  Transmission Date: 20190711
  Serious: Yes (Other)
  Sender: FDA-Public Use
  Company Number: IT-MYLANLABS-2019M1043882

PATIENT
  Age: 14 Year
  Sex: Male
  Weight: 35 kg

DRUGS (6)
  1. BUCCOLAM [Concomitant]
     Active Substance: MIDAZOLAM HYDROCHLORIDE
     Dosage: 10 MILLIGRAM
  2. FRISIUM [Concomitant]
     Active Substance: CLOBAZAM
     Dosage: 10 MILLIGRAM
  3. TOPIRAMATE. [Suspect]
     Active Substance: TOPIRAMATE
     Indication: EPILEPSY
     Dosage: 150 MILLIGRAM, QD
     Route: 048
  4. LEVETIRACETAM. [Suspect]
     Active Substance: LEVETIRACETAM
     Indication: EPILEPSY
     Dosage: 2500 MILLIGRAM, QD
     Route: 048
  5. URSOBIL [Concomitant]
     Active Substance: URSODIOL
     Dosage: 600 MILLIGRAM
  6. ZAVESCA                            /01588502/ [Concomitant]
     Dosage: 400 MILLIGRAM

REACTIONS (2)
  - Epilepsy [Recovered/Resolved]
  - Drug ineffective [Recovered/Resolved]

NARRATIVE: CASE EVENT DATE: 20181112
